FAERS Safety Report 9723733 (Version 1)
Quarter: 2013Q4

REPORT INFORMATION
  Report Type: Spontaneous
  Country: FR (occurrence: FR)
  Receive Date: 20131202
  Receipt Date: 20131202
  Transmission Date: 20140711
  Serious: Yes (Other)
  Sender: FDA-Public Use
  Company Number: FR-PFIZER INC-2013338531

PATIENT
  Sex: Male

DRUGS (1)
  1. INLYTA [Suspect]
     Dosage: UNK
     Dates: start: 20130529, end: 20131108

REACTIONS (1)
  - Thrombocytopenic purpura [Unknown]
